FAERS Safety Report 11429313 (Version 1)
Quarter: 2015Q3

REPORT INFORMATION
  Report Type: Spontaneous
  Country: US (occurrence: US)
  Receive Date: 20150828
  Receipt Date: 20150828
  Transmission Date: 20151125
  Serious: No
  Sender: FDA-Public Use
  Company Number: US-ROCHE-1235662

PATIENT
  Age: 29 Year
  Sex: Female
  Weight: 81.72 kg

DRUGS (3)
  1. PEGASYS [Suspect]
     Active Substance: PEGINTERFERON ALFA-2A
     Indication: CHRONIC HEPATITIS C
     Route: 058
     Dates: start: 20130607
  2. INCIVEK [Suspect]
     Active Substance: TELAPREVIR
     Indication: CHRONIC HEPATITIS C
     Route: 065
     Dates: start: 20130607, end: 20130831
  3. RIBAVIRIN. [Suspect]
     Active Substance: RIBAVIRIN
     Indication: CHRONIC HEPATITIS C
     Dosage: DIVIDED DOSES FOR 48 WEEKS THERAPY
     Route: 048
     Dates: start: 20130607

REACTIONS (6)
  - Platelet count decreased [Unknown]
  - Anal pruritus [Unknown]
  - White blood cell count decreased [Unknown]
  - Abdominal pain [Unknown]
  - Regurgitation [Unknown]
  - Red blood cell count decreased [Unknown]

NARRATIVE: CASE EVENT DATE: 20130607
